FAERS Safety Report 21151978 (Version 1)
Quarter: 2022Q3

REPORT INFORMATION
  Report Type: Spontaneous
  Country: US (occurrence: US)
  Receive Date: 20220730
  Receipt Date: 20220730
  Transmission Date: 20221026
  Serious: No
  Sender: FDA-Public Use
  Company Number: US-SA-SAC20220722001658

PATIENT
  Age: 54 Year
  Sex: Male
  Weight: 68 kg

DRUGS (5)
  1. DUPIXENT [Suspect]
     Active Substance: DUPILUMAB
     Indication: Nasal polyps
     Dosage: 300 MG, QOW
     Route: 058
  2. LOSARTAN [Concomitant]
     Active Substance: LOSARTAN
     Indication: Hypertension
  3. MODAFINIL [Concomitant]
     Active Substance: MODAFINIL
  4. FINASTERIDE [Concomitant]
     Active Substance: FINASTERIDE
  5. PREDNISONE [Concomitant]
     Active Substance: PREDNISONE
     Indication: Rhinitis allergic

REACTIONS (2)
  - Injection site mass [Recovered/Resolved]
  - Product use in unapproved indication [Unknown]
